FAERS Safety Report 8277475-3 (Version None)
Quarter: 2012Q2

REPORT INFORMATION
  Report Type: 
  Country: None (occurrence: None)
  Receive Date: 20120412
  Receipt Date: 20120405
  Transmission Date: 20120825
  Serious: Yes (Hospitalization, Other)
  Sender: FDA-Public Use
  Company Number: PHHY2011DE22511

PATIENT
  Sex: Female
  Weight: 79 kg

DRUGS (11)
  1. SPIRONOLACTONE [Concomitant]
     Indication: OEDEMA
     Dosage: 50 MG, PER DAY
     Route: 048
     Dates: start: 20100114
  2. LISINOPRIL [Concomitant]
     Indication: HYPERTENSION
     Dosage: 10 MG, PER DAY
     Route: 048
     Dates: start: 20100910
  3. BISOPROLOL [Suspect]
     Dosage: 10 MG, PER DAY
     Route: 048
  4. TORSEMIDE [Concomitant]
     Dosage: 10 MG, QD
     Route: 048
  5. BETA BLOCKING AGENTS [Concomitant]
  6. ANTICOAGULANTS [Concomitant]
     Route: 048
  7. CALCIUM CHANNEL BLOCKERS [Concomitant]
  8. AMIODARONE HCL [Concomitant]
     Indication: ARRHYTHMIA
     Dosage: 200 MG, PER DAY
     Route: 048
     Dates: start: 20101007
  9. RASILEZ [Suspect]
     Indication: HYPERTENSION
     Dosage: 300 MG, PER DAY
     Route: 048
     Dates: start: 20090212, end: 20100313
  10. FUROSEMIDE [Concomitant]
     Dosage: 40 MG, PER DAY
     Route: 048
     Dates: start: 20100324
  11. CALCITRIOL [Concomitant]
     Indication: RENAL FAILURE CHRONIC
     Dosage: 0.25 UG, PER DAY
     Route: 048
     Dates: start: 20100910

REACTIONS (7)
  - ARRHYTHMIA [None]
  - OEDEMA [None]
  - DYSPNOEA [None]
  - RENAL FAILURE CHRONIC [None]
  - MITRAL VALVE INCOMPETENCE [None]
  - CARDIAC FAILURE [None]
  - BLOOD PRESSURE DECREASED [None]
